FAERS Safety Report 7415159-1 (Version None)
Quarter: 2011Q2

REPORT INFORMATION
  Report Type: 
  Country: None (occurrence: None)
  Receive Date: 20110414
  Receipt Date: 20110404
  Transmission Date: 20111010
  Serious: Yes (Other)
  Sender: FDA-Public Use
  Company Number: PHEH2008US02179

PATIENT
  Sex: Female
  Weight: 72.562 kg

DRUGS (14)
  1. MARINOL [Concomitant]
     Indication: NAUSEA
     Dosage: 5 MG, BID
     Dates: start: 20071228, end: 20080325
  2. ZANTAC [Concomitant]
     Indication: GASTROOESOPHAGEAL REFLUX DISEASE
     Dosage: 150 MG, QD
     Dates: start: 20071018
  3. HYDROXYZINE [Concomitant]
     Indication: NAUSEA
     Dosage: 50 MG, QID
     Dates: start: 20070901
  4. TRILISATE [Suspect]
     Indication: MYALGIA
     Dosage: 750 MG, BID
     Route: 048
     Dates: start: 20080104, end: 20080125
  5. LEVOTHYROXINE [Concomitant]
     Indication: THYROID DISORDER
     Dosage: 0.1 UNK, QHS
     Route: 048
     Dates: start: 20070901
  6. ALPRAZOLAM [Concomitant]
     Indication: ANXIETY
     Dosage: 0.5 MG, PRN
     Dates: start: 20071228
  7. BENADRYL ^WARNER-LAMBERT^ /USA/ [Concomitant]
     Indication: NAUSEA
     Dosage: 2 TABS QAM
     Route: 048
     Dates: start: 20071228
  8. HYDROCORTISONE [Concomitant]
     Route: 061
  9. ACETAMINOPHEN [Concomitant]
     Route: 048
  10. DESOXIMETASONE [Concomitant]
     Route: 061
  11. MULTIPLE VITAMINS [Concomitant]
     Route: 048
  12. TASIGNA [Suspect]
     Indication: SYSTEMIC MASTOCYTOSIS
     Dosage: 400 MG, BID
     Route: 048
     Dates: start: 20071228, end: 20080115
  13. LIPITOR [Suspect]
     Indication: HYPERCHOLESTEROLAEMIA
     Dosage: 10 MG, QHS
     Dates: start: 20070901, end: 20080125
  14. AMBIEN [Concomitant]
     Indication: INSOMNIA
     Dosage: 12.5 MG, QHS
     Dates: start: 20070901

REACTIONS (16)
  - BLOOD GLUCOSE INCREASED [None]
  - PRURITUS [None]
  - ANXIETY [None]
  - LIVER FUNCTION TEST ABNORMAL [None]
  - BLOOD BILIRUBIN INCREASED [None]
  - FEELING ABNORMAL [None]
  - NAUSEA [None]
  - VOMITING [None]
  - BLOOD SODIUM DECREASED [None]
  - DYSPNOEA [None]
  - ASPARTATE AMINOTRANSFERASE INCREASED [None]
  - ALANINE AMINOTRANSFERASE INCREASED [None]
  - ARTHRALGIA [None]
  - BLOOD ALKALINE PHOSPHATASE INCREASED [None]
  - BLOOD UREA INCREASED [None]
  - MYALGIA [None]
